FAERS Safety Report 4889423-4 (Version None)
Quarter: 2006Q1

REPORT INFORMATION
  Report Type: 
  Country: None (occurrence: None)
  Receive Date: 20060120
  Receipt Date: 20060111
  Transmission Date: 20060701
  Serious: Yes (Other)
  Sender: FDA-Public Use
  Company Number: 2006006869

PATIENT
  Sex: Female
  Weight: 54.4316 kg

DRUGS (6)
  1. ALPRAZOLAM [Suspect]
     Indication: ANXIETY
     Dosage: 5 YEARS AGO
  2. PRILOSEC [Concomitant]
  3. LASIX [Concomitant]
  4. POTASSIUM (POTASSIUM) [Concomitant]
  5. ADVAIR DISKUS 100/50 [Concomitant]
  6. SPIRIVA [Concomitant]

REACTIONS (5)
  - CARCINOID TUMOUR [None]
  - CIRCUMSTANCE OR INFORMATION CAPABLE OF LEADING TO MEDICATION ERROR [None]
  - FEELING ABNORMAL [None]
  - LUNG NEOPLASM [None]
  - LUNG NEOPLASM MALIGNANT [None]
